FAERS Safety Report 16991756 (Version 6)
Quarter: 2020Q1

REPORT INFORMATION
  Report Type: Report from Study
  Country: None (occurrence: US)
  Receive Date: 20191104
  Receipt Date: 20200302
  Transmission Date: 20200409
  Serious: Yes (Hospitalization)
  Sender: FDA-Public Use
  Company Number: US-ABBVIE-19K-163-2918757-00

PATIENT
  Sex: Male
  Weight: 74.91 kg

DRUGS (4)
  1. HUMIRA [Suspect]
     Active Substance: ADALIMUMAB
     Indication: CROHN^S DISEASE
     Dosage: 2 PENS ON DAY 1
     Route: 058
     Dates: start: 20190905, end: 20190905
  2. HUMIRA [Suspect]
     Active Substance: ADALIMUMAB
     Indication: CROHN^S DISEASE
     Dosage: FOR APPROXIMATELY SIX WEEKS
     Route: 058
     Dates: start: 20190808, end: 20191017
  3. HUMIRA [Suspect]
     Active Substance: ADALIMUMAB
     Route: 058
     Dates: start: 20191212
  4. IMURAN [Concomitant]
     Active Substance: AZATHIOPRINE
     Indication: PRODUCT USED FOR UNKNOWN INDICATION

REACTIONS (14)
  - Malaise [Unknown]
  - Rash [Unknown]
  - Headache [Unknown]
  - Fistula discharge [Unknown]
  - Loss of personal independence in daily activities [Unknown]
  - Fear [Unknown]
  - Anxiety [Unknown]
  - Constipation [Unknown]
  - Asthenia [Unknown]
  - Rectal haemorrhage [Unknown]
  - Gastrointestinal fistula [Recovering/Resolving]
  - Insomnia [Recovering/Resolving]
  - Nausea [Unknown]
  - Crohn^s disease [Unknown]

NARRATIVE: CASE EVENT DATE: 2019
